FAERS Safety Report 4944547-8 (Version None)
Quarter: 2006Q1

REPORT INFORMATION
  Report Type: 
  Country: None (occurrence: None)
  Receive Date: 20060117
  Receipt Date: 20051104
  Transmission Date: 20060701
  Serious: Yes (Other)
  Sender: FDA-Public Use
  Company Number: 2005124679

PATIENT
  Age: 77 Year
  Sex: Male

DRUGS (6)
  1. MACUGEN [Suspect]
     Indication: CHOROIDAL NEOVASCULARISATION
     Dosage: (0.3 MG, 1 IN 6 WK) INTRAVITREOUS
     Dates: start: 20050613
  2. XALCOM (LATANOPROST, TIMOLOL) [Concomitant]
  3. COSOPT [Concomitant]
  4. ALPHAGAN [Concomitant]
  5. DIAMOX [Concomitant]
  6. VITAMINS [Concomitant]

REACTIONS (2)
  - EYE INFLAMMATION [None]
  - FOREIGN BODY IN EYE [None]
